FAERS Safety Report 11073020 (Version 1)
Quarter: 2015Q2

REPORT INFORMATION
  Report Type: Spontaneous
  Country: SE (occurrence: SE)
  Receive Date: 20150428
  Receipt Date: 20150428
  Transmission Date: 20150821
  Serious: Yes (Other)
  Sender: FDA-Public Use
  Company Number: SE-TEVA-556878ISR

PATIENT
  Age: 76 Year
  Sex: Male

DRUGS (1)
  1. SILDENAFIL 50 MILLIGRAM TABLETTER PER ORAL [Suspect]
     Active Substance: SILDENAFIL
     Route: 048
     Dates: start: 20150223

REACTIONS (1)
  - Tendonitis [Not Recovered/Not Resolved]
